FAERS Safety Report 18302985 (Version 2)
Quarter: 2020Q4

REPORT INFORMATION
  Report Type: Spontaneous
  Country: FR (occurrence: FR)
  Receive Date: 20200923
  Receipt Date: 20201005
  Transmission Date: 20210113
  Serious: Yes (Other)
  Sender: FDA-Public Use
  Company Number: FR-TEVA-2020-FR-1829600

PATIENT
  Age: 65 Year
  Sex: Male

DRUGS (7)
  1. ATENOLOL. [Concomitant]
     Active Substance: ATENOLOL
     Indication: HYPERTENSION
     Route: 065
  2. ATORVASTATIN [Concomitant]
     Active Substance: ATORVASTATIN
     Indication: MYOCARDIAL INFARCTION
     Route: 065
  3. PERINDOPRIL [Concomitant]
     Active Substance: PERINDOPRIL
     Indication: HYPERTENSION
     Route: 065
  4. ASPIRIN. [Concomitant]
     Active Substance: ASPIRIN
     Indication: MYOCARDIAL INFARCTION
     Route: 065
  5. PANTOPRAZOLE [Suspect]
     Active Substance: PANTOPRAZOLE
     Indication: GASTRIC ULCER
     Dosage: LONG-TERM
     Route: 065
  6. INDAPAMIDE. [Suspect]
     Active Substance: INDAPAMIDE
     Indication: HYPERTENSION
     Route: 065
  7. PRASUGREL. [Concomitant]
     Active Substance: PRASUGREL
     Indication: MYOCARDIAL INFARCTION
     Route: 065

REACTIONS (6)
  - Ventricular extrasystoles [Recovered/Resolved]
  - Atrial fibrillation [Recovered/Resolved]
  - Hypomagnesaemia [Recovered/Resolved]
  - Atrioventricular block second degree [Recovered/Resolved]
  - Electrocardiogram QT prolonged [Recovered/Resolved]
  - Hypocalcaemia [Recovered/Resolved]
